FAERS Safety Report 21284140 (Version 1)
Quarter: 2022Q3

REPORT INFORMATION
  Report Type: Spontaneous
  Country: IN (occurrence: IN)
  Receive Date: 20220902
  Receipt Date: 20220902
  Transmission Date: 20221026
  Serious: Yes (Other)
  Sender: FDA-Public Use
  Company Number: IN-SUN PHARMACEUTICAL INDUSTRIES LTD-2022R1-353135

PATIENT
  Weight: .8 kg

DRUGS (3)
  1. METOPROLOL [Suspect]
     Active Substance: METOPROLOL
     Indication: Hypertension
     Dosage: UNK
     Route: 064
  2. PRAZOSIN [Suspect]
     Active Substance: PRAZOSIN
     Indication: Hypertension
     Dosage: UNK
     Route: 064
  3. NITROPRUSSIDE [Suspect]
     Active Substance: NITROPRUSSIDE
     Indication: Hypertension
     Dosage: UNK
     Route: 064

REACTIONS (2)
  - Low birth weight baby [Unknown]
  - Foetal exposure during pregnancy [Unknown]
